FAERS Safety Report 13512521 (Version 2)
Quarter: 2017Q2

REPORT INFORMATION
  Report Type: Spontaneous
  Country: US (occurrence: US)
  Receive Date: 20170504
  Receipt Date: 20170516
  Transmission Date: 20170830
  Serious: Yes (Hospitalization, Other)
  Sender: FDA-Public Use
  Company Number: US-MYLANLABS-2017M1025653

PATIENT

DRUGS (12)
  1. BACLOFEN. [Concomitant]
     Active Substance: BACLOFEN
     Indication: PRODUCT USED FOR UNKNOWN INDICATION
     Dosage: 1 DF, TID
     Route: 048
  2. SERTRALINE [Concomitant]
     Active Substance: SERTRALINE HYDROCHLORIDE
     Indication: PRODUCT USED FOR UNKNOWN INDICATION
     Dosage: 100 MG, QD
     Route: 048
  3. LIDOCAINE. [Concomitant]
     Active Substance: LIDOCAINE
     Indication: PAIN
     Dosage: TID, AS NEEDED, DISCONTINUED
     Route: 061
  4. CLOPIDOGREL [Concomitant]
     Active Substance: CLOPIDOGREL BISULFATE
     Indication: PRODUCT USED FOR UNKNOWN INDICATION
     Dosage: 75 MG, QD
     Route: 048
  5. GABAPENTIN. [Concomitant]
     Active Substance: GABAPENTIN
     Indication: PRODUCT USED FOR UNKNOWN INDICATION
     Dosage: 300 MG, HS
  6. NITROFURANTOIN (MACROCRYSTAL-MONOHYDRATE) [Concomitant]
     Indication: PRODUCT USED FOR UNKNOWN INDICATION
     Dosage: 1 DF (THREE TIMES EVERY WEEK)
  7. PANTOPRAZOLE [Concomitant]
     Active Substance: PANTOPRAZOLE
     Indication: PRODUCT USED FOR UNKNOWN INDICATION
     Dosage: 40 MG, QD
     Route: 048
  8. TAMSULOSIN [Concomitant]
     Active Substance: TAMSULOSIN
     Indication: PRODUCT USED FOR UNKNOWN INDICATION
     Dosage: 24 HR CAPSULE
  9. ATORVASTATIN CALCIUM TABLETS [Suspect]
     Active Substance: ATORVASTATIN CALCIUM
     Indication: BLOOD TRIGLYCERIDES INCREASED
     Dosage: 80 MG, QD (EVERY EVENING)
     Route: 048
     Dates: start: 20151220, end: 20170502
  10. ASPIRIN. [Concomitant]
     Active Substance: ASPIRIN
     Indication: PRODUCT USED FOR UNKNOWN INDICATION
     Dosage: 325 MG, QD, TAKE WITH FOOD
     Route: 048
  11. IRBESARTAN. [Concomitant]
     Active Substance: IRBESARTAN
     Indication: PRODUCT USED FOR UNKNOWN INDICATION
     Dosage: 150 MG, HS
     Route: 048
  12. OXYBUTYNIN [Concomitant]
     Active Substance: OXYBUTYNIN
     Indication: PRODUCT USED FOR UNKNOWN INDICATION
     Dosage: 1 DF, TID, DISCONTINUED
     Route: 048

REACTIONS (36)
  - Cerebrovascular accident [Recovering/Resolving]
  - Influenza [Recovered/Resolved]
  - Acute respiratory failure [Unknown]
  - Acute kidney injury [Unknown]
  - Drug dose omission [Not Recovered/Not Resolved]
  - Blood creatinine increased [Unknown]
  - Sleep apnoea syndrome [Unknown]
  - Depression [Unknown]
  - Cognitive disorder [Unknown]
  - Chronic obstructive pulmonary disease [Unknown]
  - Bladder spasm [Unknown]
  - Myocardial infarction [Unknown]
  - Sepsis [Unknown]
  - Myalgia [Not Recovered/Not Resolved]
  - Alcohol withdrawal syndrome [Unknown]
  - Hemiparesis [Unknown]
  - Pneumonia influenzal [Unknown]
  - Delirium [Unknown]
  - Asthenia [Recovering/Resolving]
  - Pain in extremity [Recovering/Resolving]
  - Swelling [Unknown]
  - Dehydration [Unknown]
  - Dysphagia [Recovering/Resolving]
  - Gait disturbance [Unknown]
  - Loss of personal independence in daily activities [Unknown]
  - Urinary retention [Not Recovered/Not Resolved]
  - Musculoskeletal stiffness [Recovering/Resolving]
  - Dysarthria [Unknown]
  - Nausea [Unknown]
  - Mental status changes [Unknown]
  - Nasal septum deviation [Unknown]
  - Confusional state [Recovering/Resolving]
  - Amnesia [Recovering/Resolving]
  - Vomiting [Unknown]
  - Embolic stroke [Unknown]
  - Chromaturia [Unknown]

NARRATIVE: CASE EVENT DATE: 20151220
